FAERS Safety Report 17760349 (Version 1)
Quarter: 2020Q2

REPORT INFORMATION
  Report Type: Spontaneous
  Country: CZ (occurrence: CZ)
  Receive Date: 20200508
  Receipt Date: 20200508
  Transmission Date: 20200714
  Serious: Yes (Death, Hospitalization, Other)
  Sender: FDA-Public Use
  Company Number: CZ-AMGEN-CZESP2020072728

PATIENT

DRUGS (9)
  1. MELPHALAN. [Concomitant]
     Active Substance: MELPHALAN
     Indication: LYMPHOMA
     Dosage: 140 MILLIGRAM/SQ. METER, QD
     Route: 042
  2. FLUCONAZOLE. [Concomitant]
     Active Substance: FLUCONAZOLE
     Indication: PROPHYLAXIS
  3. ITRACONAZOLE. [Concomitant]
     Active Substance: ITRACONAZOLE
     Indication: PROPHYLAXIS
  4. COTRIMOXAZOLE [Concomitant]
     Active Substance: SULFAMETHOXAZOLE\TRIMETHOPRIM
     Indication: PROPHYLAXIS
  5. ETOPOSIDE. [Concomitant]
     Active Substance: ETOPOSIDE
     Indication: LYMPHOMA
     Dosage: 100 MILLIGRAM/SQ. METER, BID
     Route: 042
  6. NEUPOGEN [Suspect]
     Active Substance: FILGRASTIM
     Indication: NEUTROPENIA
     Dosage: 5 MICROGRAM/KILOGRAM, QD
     Route: 058
  7. CYTARABINE. [Concomitant]
     Active Substance: CYTARABINE
     Indication: LYMPHOMA
     Dosage: 200 MILLIGRAM/SQ. METER, BID
     Route: 042
  8. ACYCLOVIR [ACICLOVIR] [Concomitant]
     Active Substance: ACYCLOVIR
     Indication: PROPHYLAXIS
  9. BICNU [Concomitant]
     Active Substance: CARMUSTINE
     Indication: LYMPHOMA
     Dosage: 300 MILLIGRAM/SQ. METER, QD
     Route: 042

REACTIONS (9)
  - Pyrexia [Unknown]
  - Bacterial sepsis [Fatal]
  - Septic shock [Fatal]
  - Haemorrhage [Unknown]
  - Mucosal inflammation [Unknown]
  - Transplant failure [Unknown]
  - Multiple organ dysfunction syndrome [Fatal]
  - Emotional distress [Unknown]
  - Pneumonia [Unknown]
